FAERS Safety Report 9921908 (Version 1)
Quarter: 2014Q1

REPORT INFORMATION
  Report Type: Spontaneous
  Country: GB (occurrence: GB)
  Receive Date: 20140225
  Receipt Date: 20140225
  Transmission Date: 20141002
  Serious: Yes (Other)
  Sender: FDA-Public Use
  Company Number: GB-GALDERMA-GB14000650

PATIENT
  Sex: Female

DRUGS (1)
  1. PLIAGLIS [Suspect]
     Indication: ANAESTHESIA PROCEDURE
     Dosage: 7%-7%
     Route: 061
     Dates: start: 20140213

REACTIONS (1)
  - Angioedema [Recovering/Resolving]
